FAERS Safety Report 4335855-2 (Version None)
Quarter: 2004Q2

REPORT INFORMATION
  Report Type: 
  Country: None (occurrence: None)
  Receive Date: 20040409
  Receipt Date: 20040401
  Transmission Date: 20050107
  Serious: Yes (Other)
  Sender: FDA-Public Use
  Company Number: PHBS2004JP04574

PATIENT
  Age: 71 Year
  Sex: Male

DRUGS (2)
  1. SANDOSTATIN [Suspect]
     Indication: COLITIS ISCHAEMIC
     Dosage: 100 UG/D
     Route: 058
     Dates: start: 20040319, end: 20040326
  2. FIRSTCIN [Concomitant]
     Dosage: 2 G/D
     Route: 042

REACTIONS (2)
  - NEUTROPENIA [None]
  - WHITE BLOOD CELL COUNT DECREASED [None]
